FAERS Safety Report 4546897-6 (Version None)
Quarter: 2005Q1

REPORT INFORMATION
  Report Type: 
  Country: None (occurrence: None)
  Receive Date: 20050106
  Receipt Date: 20041015
  Transmission Date: 20050727
  Serious: Yes (Other)
  Sender: FDA-Public Use
  Company Number: DE-MERCK-0410DEU00497

PATIENT
  Age: 79 Year
  Sex: Female
  Weight: 76 kg

DRUGS (6)
  1. VIOXX [Suspect]
     Indication: KNEE ARTHROPLASTY
     Route: 048
     Dates: start: 20021028, end: 20021125
  2. VIOXX [Suspect]
     Indication: OSTEOARTHRITIS
     Route: 048
     Dates: start: 20021028, end: 20021125
  3. CERTOPARIN SODIUM [Concomitant]
     Indication: THROMBOSIS PROPHYLAXIS
     Route: 065
     Dates: start: 20021028, end: 20021201
  4. BELOC-ZOK [Concomitant]
     Indication: HYPERTENSION
     Route: 065
  5. BIFITERAL [Concomitant]
     Indication: CONSTIPATION
     Route: 065
     Dates: start: 20021115
  6. CIBACEN [Concomitant]
     Indication: HYPERTENSION
     Route: 065

REACTIONS (13)
  - ANGINA PECTORIS [None]
  - ANOREXIA [None]
  - CARDIAC DISORDER [None]
  - CHEST DISCOMFORT [None]
  - COUGH [None]
  - CYSTITIS NONINFECTIVE [None]
  - DIARRHOEA [None]
  - HYPERTENSION [None]
  - MYOCARDIAL INFARCTION [None]
  - NAUSEA [None]
  - PRURITUS [None]
  - URINARY TRACT INFECTION [None]
  - VOMITING [None]
